FAERS Safety Report 7441505-9 (Version None)
Quarter: 2011Q2

REPORT INFORMATION
  Report Type: 
  Country: None (occurrence: None)
  Receive Date: 20110428
  Receipt Date: 20110420
  Transmission Date: 20111010
  Serious: Yes (Other)
  Sender: FDA-Public Use
  Company Number: PL-GENZYME-THYM-1002429

PATIENT
  Age: 19 Year
  Sex: Female

DRUGS (12)
  1. MESNA [Concomitant]
     Indication: PROPHYLAXIS
     Route: 065
  2. THYMOGLOBULIN [Suspect]
     Dosage: 1 MG/KG, QD
     Route: 042
  3. CYCLOPHOSPHAMIDE [Concomitant]
     Indication: BONE MARROW CONDITIONING REGIMEN
     Dosage: 50 MG/KG, QD
     Route: 042
  4. FLUCONAZOLE [Concomitant]
     Indication: INFECTION PROPHYLAXIS
     Route: 065
  5. ACYCLOVIR [Concomitant]
     Indication: INFECTION PROPHYLAXIS
     Route: 065
  6. THYMOGLOBULIN [Suspect]
     Indication: BONE MARROW CONDITIONING REGIMEN
     Dosage: 0.5 MG/KG, ONCE
     Route: 042
  7. INSULIN [Concomitant]
     Indication: TYPE 1 DIABETES MELLITUS
     Route: 065
  8. CETIRIZINE HCL [Concomitant]
     Indication: ANAPHYLAXIS PROPHYLAXIS
     Dosage: 20 MG, UNK
     Route: 065
  9. ACARBOSE [Concomitant]
     Indication: METABOLIC DISORDER
     Dosage: 300 MG, UNK
     Route: 065
  10. COTRIM [Concomitant]
     Indication: INFECTION PROPHYLAXIS
     Route: 065
  11. ORAL CONTRACEPTIVE NOS [Concomitant]
     Indication: CONTRACEPTION
     Route: 048
  12. NEUPOGEN [Concomitant]
     Indication: PRODUCT USED FOR UNKNOWN INDICATION
     Dosage: 5 MCG/KG, UNK
     Route: 065

REACTIONS (4)
  - NAUSEA [None]
  - OEDEMA PERIPHERAL [None]
  - TRANSAMINASES INCREASED [None]
  - PYREXIA [None]
